FAERS Safety Report 10260823 (Version 1)
Quarter: 2014Q2

REPORT INFORMATION
  Report Type: Spontaneous
  Country: SE (occurrence: SE)
  Receive Date: 20140626
  Receipt Date: 20140626
  Transmission Date: 20141212
  Serious: Yes (Hospitalization)
  Sender: FDA-Public Use
  Company Number: SE-BRISTOL-MYERS SQUIBB COMPANY-21015474

PATIENT
  Age: 92 Year
  Sex: Female

DRUGS (9)
  1. ELIQUIS [Suspect]
     Indication: DEEP VEIN THROMBOSIS
     Dates: start: 20140423, end: 20140516
  2. ELIQUIS [Suspect]
     Indication: DEEP VEIN THROMBOSIS
  3. ELIQUIS [Suspect]
     Indication: PULMONARY EMBOLISM
     Dates: start: 20140423, end: 20140516
  4. ELIQUIS [Suspect]
     Indication: PULMONARY EMBOLISM
  5. ZOLEDRONIC ACID [Concomitant]
  6. ALVEDON [Concomitant]
  7. IMOVANE [Concomitant]
  8. MIRTAZAPINE [Concomitant]
  9. TIMOLOL [Concomitant]

REACTIONS (4)
  - Toxic skin eruption [Not Recovered/Not Resolved]
  - Pyrexia [Unknown]
  - Cognitive disorder [Unknown]
  - Urine odour abnormal [Unknown]
